FAERS Safety Report 26139094 (Version 1)
Quarter: 2025Q4

REPORT INFORMATION
  Report Type: Spontaneous
  Country: US (occurrence: US)
  Receive Date: 20251210
  Receipt Date: 20251210
  Transmission Date: 20260118
  Serious: No
  Sender: EDENBRIDGE PHARMACEUTICALS
  Company Number: US-EDENBRIDGE PHARMACEUTICALS, LLC-US-2025EDE000037

PATIENT
  Sex: Female

DRUGS (6)
  1. IVERMECTIN [Suspect]
     Active Substance: IVERMECTIN
     Indication: Scabies
     Dosage: FIRST TREATMENT - TAKEN TWO WEEKS APART WITH PERMETHRIN
     Route: 065
     Dates: start: 2023, end: 2023
  2. IVERMECTIN [Suspect]
     Active Substance: IVERMECTIN
     Dosage: SECOND TREATMENT - TAKEN TWO WEEKS APART WITH PERMETHRIN
     Route: 065
     Dates: start: 2023, end: 2023
  3. IVERMECTIN [Suspect]
     Active Substance: IVERMECTIN
     Dosage: 4 PILLS PRESCRIBED TO TAKE THEM IN TWO WEEKS (^^I DO NOT KNOW WHETHER TO TAKE THEM NOW, WITH THE PER
     Route: 065
     Dates: start: 2025
  4. PERMETHRIN [Concomitant]
     Active Substance: PERMETHRIN
     Indication: Scabies
     Dosage: FIRST TREATMENT -TWO WEEKS APART (TAKEN WITH IVERMECTIN)
     Route: 065
     Dates: start: 2023, end: 2023
  5. PERMETHRIN [Concomitant]
     Active Substance: PERMETHRIN
     Dosage: SECOND TREATMENT -TWO WEEKS APART (TAKEN WITH IVERMECTIN)
     Route: 065
     Dates: start: 2023, end: 2023
  6. PERMETHRIN [Concomitant]
     Active Substance: PERMETHRIN
     Dosage: UNK
     Route: 065
     Dates: start: 2025

REACTIONS (1)
  - Drug ineffective for unapproved indication [Unknown]

NARRATIVE: CASE EVENT DATE: 20250101
